FAERS Safety Report 5778791-7 (Version None)
Quarter: 2008Q2

REPORT INFORMATION
  Report Type: 
  Country: None (occurrence: None)
  Receive Date: 20080619
  Receipt Date: 20080610
  Transmission Date: 20081010
  Serious: Yes (Other)
  Sender: FDA-Public Use
  Company Number: PHRM2007FR02281

PATIENT
  Age: 70 Year
  Sex: Female

DRUGS (4)
  1. LAMISIL [Suspect]
     Dosage: 250 MG, QD
     Route: 048
     Dates: start: 20070301, end: 20070602
  2. HOMEOPATHIC PREPARATIONS [Suspect]
     Dosage: 9 CH
  3. HOMEOPATHIC PREPARATIONS [Suspect]
     Dosage: 15 CH
  4. HOMEOPATHIC PREPARATIONS [Suspect]
     Dosage: 30 CH

REACTIONS (12)
  - ARTHRALGIA [None]
  - BACK PAIN [None]
  - FATIGUE [None]
  - GAIT DISTURBANCE [None]
  - MALAISE [None]
  - MUSCLE SPASMS [None]
  - MYALGIA [None]
  - PAIN [None]
  - PAIN IN EXTREMITY [None]
  - PARAESTHESIA [None]
  - RED BLOOD CELL COUNT DECREASED [None]
  - SUICIDAL IDEATION [None]
